FAERS Safety Report 8894470 (Version 1)
Quarter: 2012Q4

REPORT INFORMATION
  Report Type: 
  Country: FR (occurrence: FR)
  Receive Date: 20121108
  Receipt Date: 20121108
  Transmission Date: 20130627
  Serious: Yes (Hospitalization)
  Sender: FDA-Public Use
  Company Number: FR-SANOFI-AVENTIS-2012SA080515

PATIENT
  Age: 82 Year
  Sex: Female

DRUGS (6)
  1. LASILIX [Suspect]
     Indication: DECOMPENSATION CARDIAC
     Route: 048
     Dates: start: 201208
  2. AMILORIDE HYDROCHLORIDE [Suspect]
     Indication: DECOMPENSATION CARDIAC
     Route: 048
     Dates: start: 201208, end: 20120828
  3. BISOPROLOL [Concomitant]
  4. UVEDOSE [Concomitant]
  5. COUMADINE [Concomitant]
  6. TINZAPARIN SODIUM [Concomitant]

REACTIONS (2)
  - Hyperkalaemia [Recovered/Resolved]
  - Hyponatraemia [Recovered/Resolved]
